FAERS Safety Report 16164877 (Version 2)
Quarter: 2022Q1

REPORT INFORMATION
  Report Type: Report from Study
  Country: US (occurrence: US)
  Receive Date: 20190405
  Receipt Date: 20220107
  Transmission Date: 20220423
  Serious: Yes (Other)
  Sender: FDA-Public Use
  Company Number: US-PFIZER INC-2019134199

PATIENT
  Age: 10 Year
  Sex: Male
  Weight: 29.6 kg

DRUGS (4)
  1. VINCRISTINE SULFATE [Suspect]
     Active Substance: VINCRISTINE SULFATE
     Indication: Embryonal rhabdomyosarcoma
     Dosage: 1.5MG/M2 FOR PATIENTS NO LESS THAN 0.6 M2 (MAX DOSE 2MG) OR PER DOSING TABLE FOR PATIENTS LESS THAN
     Route: 042
     Dates: start: 20190301
  2. TEMSIROLIMUS [Suspect]
     Active Substance: TEMSIROLIMUS
     Indication: Embryonal rhabdomyosarcoma
     Dosage: 15MG/M2 FOR PATIENTS NO LESS THAN 10 KG (MAX DOSE 25MG) OR 0.5 MG/KG FOR PATIENTS LESS THAN 10 KG IV
     Route: 042
     Dates: start: 20190302
  3. CYCLOPHOSPHAMIDE [Suspect]
     Active Substance: CYCLOPHOSPHAMIDE
     Indication: Embryonal rhabdomyosarcoma
     Dosage: 1200MG/M2 FOR PATIENTS NO LESS THAN 0.6 M2 OR PER DOSING TABLE FOR PATIENTS LESS THAN 0.6 M2 IV OVER
     Route: 042
     Dates: start: 20190302
  4. DACTINOMYCIN [Suspect]
     Active Substance: DACTINOMYCIN
     Indication: Embryonal rhabdomyosarcoma
     Dosage: 0.05MG/KG FOR PATIENTS NO LESS THAN 14 KG (MAX DOSE 2.5MG) OR PER DOSING TABLE FOR PATIENTS LESS THA
     Route: 042
     Dates: start: 20190301

REACTIONS (1)
  - Stomatitis [Recovered/Resolved with Sequelae]

NARRATIVE: CASE EVENT DATE: 20190313
